FAERS Safety Report 4589714-0 (Version None)
Quarter: 2005Q1

REPORT INFORMATION
  Report Type: 
  Country: None (occurrence: None)
  Receive Date: 20050217
  Receipt Date: 20050203
  Transmission Date: 20050727
  Serious: No
  Sender: FDA-Public Use
  Company Number: 05H-151-0289477-00

PATIENT
  Age: 45 Year
  Sex: Female

DRUGS (2)
  1. HEPARIN SODIUM [Suspect]
  2. PHENPROCOUMON [Suspect]

REACTIONS (3)
  - FEMORAL NERVE INJURY [None]
  - MEDICATION ERROR [None]
  - MUSCLE HAEMORRHAGE [None]
